FAERS Safety Report 25676283 (Version 3)
Quarter: 2025Q4

REPORT INFORMATION
  Report Type: Report from Study
  Country: US (occurrence: US)
  Receive Date: 20250813
  Receipt Date: 20251001
  Transmission Date: 20260117
  Serious: Yes (Other)
  Sender: MALLINCKRODT
  Company Number: US-MALLINCKRODT-MNK202504825

PATIENT
  Age: 68 Year
  Sex: Female

DRUGS (11)
  1. CORTICOTROPIN [Suspect]
     Active Substance: CORTICOTROPIN
     Indication: Pulmonary sarcoidosis
     Route: 058
  2. CORTICOTROPIN [Suspect]
     Active Substance: CORTICOTROPIN
     Indication: Pulmonary sarcoidosis
  3. CORTICOTROPIN [Suspect]
     Active Substance: CORTICOTROPIN
     Indication: Adrenal disorder
  4. PREDNISOLONE [Suspect]
     Active Substance: PREDNISOLONE
     Indication: Cataract
     Dosage: UNKNOWN
     Route: 047
     Dates: start: 20250826
  5. MOXIFLOXACIN [Suspect]
     Active Substance: MOXIFLOXACIN
     Indication: Cataract
     Dosage: UNKNOWN
     Route: 047
     Dates: start: 20250826
  6. MELOXICAM [Concomitant]
     Active Substance: MELOXICAM
     Dosage: UNKNOWN
  7. METFORMIN HYDROCHLORIDE [Concomitant]
     Active Substance: METFORMIN HYDROCHLORIDE
     Dosage: UNKNOWN
  8. AZELASTINE HYDROCHLORIDE [Concomitant]
     Active Substance: AZELASTINE HYDROCHLORIDE
     Dosage: UNKNOWN
  9. BUTALBITAL AND ACETAMINOPHEN [Concomitant]
     Active Substance: ACETAMINOPHEN\BUTALBITAL
     Dosage: 50/325/4
  10. MECLIZINE HYDROCHLORIDE [Concomitant]
     Active Substance: MECLIZINE HYDROCHLORIDE
     Dosage: UNKNOWN
  11. COVID-19 VACCINE [Concomitant]
     Indication: COVID-19 immunisation
     Dosage: UNK

REACTIONS (10)
  - Sarcoidosis [Unknown]
  - Disease progression [Unknown]
  - Cataract [Recovering/Resolving]
  - Glycosylated haemoglobin increased [Unknown]
  - Anxiety [Not Recovered/Not Resolved]
  - Eye irritation [Unknown]
  - Electrolyte imbalance [Unknown]
  - Chills [Not Recovered/Not Resolved]
  - Oropharyngeal pain [Unknown]
  - Hypertension [Unknown]

NARRATIVE: CASE EVENT DATE: 20250803
